FAERS Safety Report 24743013 (Version 3)
Quarter: 2025Q2

REPORT INFORMATION
  Report Type: Spontaneous
  Country: CA (occurrence: CA)
  Receive Date: 20241217
  Receipt Date: 20250612
  Transmission Date: 20250716
  Serious: Yes (Hospitalization, Other)
  Sender: OTSUKA
  Company Number: CA-OTSUKA-2024_033544

PATIENT
  Age: 40 Year
  Sex: Female

DRUGS (8)
  1. BREXPIPRAZOLE [Suspect]
     Active Substance: BREXPIPRAZOLE
     Indication: Persecutory delusion
     Route: 065
  2. ADALIMUMAB [Suspect]
     Active Substance: ADALIMUMAB
     Indication: Ankylosing spondylitis
     Dosage: 1 EVERY 1 WEEKS (SOLUTION)
     Route: 058
  3. ADALIMUMAB [Suspect]
     Active Substance: ADALIMUMAB
     Dosage: UNK UNK, QW
     Route: 065
  4. ZUCLOPENTHIXOL [Suspect]
     Active Substance: ZUCLOPENTHIXOL
     Indication: Persecutory delusion
     Dosage: 10 MG, DAILY
     Route: 065
  5. DIMENHYDRINATE [Suspect]
     Active Substance: DIMENHYDRINATE
     Indication: Anxiety
     Dosage: 750 MG, DAILY, HIGH DOSE, FROM 20 YEARS
     Route: 065
  6. LURASIDONE HYDROCHLORIDE [Suspect]
     Active Substance: LURASIDONE HYDROCHLORIDE
     Indication: Persecutory delusion
     Route: 065
  7. METHOCARBAMOL [Suspect]
     Active Substance: METHOCARBAMOL
     Indication: Product used for unknown indication
     Route: 065
  8. ACETAMINOPHEN [Suspect]
     Active Substance: ACETAMINOPHEN
     Indication: Product used for unknown indication
     Route: 065

REACTIONS (6)
  - Depression [Unknown]
  - Paranoia [Recovering/Resolving]
  - Cognitive disorder [Recovering/Resolving]
  - Weight increased [Unknown]
  - Akathisia [Unknown]
  - Product use in unapproved indication [Unknown]
